FAERS Safety Report 6199805-9 (Version None)
Quarter: 2009Q2

REPORT INFORMATION
  Report Type: 
  Country: None (occurrence: None)
  Receive Date: 20090522
  Receipt Date: 20090515
  Transmission Date: 20091009
  Serious: Yes (Hospitalization, Other)
  Sender: FDA-Public Use
  Company Number: DE-PFIZER INC-2009180991

PATIENT
  Age: 38 Year

DRUGS (2)
  1. CHAMPIX [Suspect]
     Indication: SMOKING CESSATION THERAPY
     Dosage: UNK
     Route: 048
     Dates: start: 20080115, end: 20080128
  2. CHAMPIX [Suspect]
     Dosage: 2 MG/D
     Route: 048
     Dates: start: 20080122, end: 20080128

REACTIONS (1)
  - CHOREA [None]
